FAERS Safety Report 6020512-7 (Version None)
Quarter: 2008Q4

REPORT INFORMATION
  Report Type: 
  Country: None (occurrence: None)
  Receive Date: 20081226
  Receipt Date: 20081218
  Transmission Date: 20090506
  Serious: Yes (Other)
  Sender: FDA-Public Use
  Company Number: CA-ABBOTT-08P-028-0489121-00

PATIENT
  Sex: Female
  Weight: 101.24 kg

DRUGS (1)
  1. HUMIRA [Suspect]
     Indication: CROHN'S DISEASE
     Route: 058
     Dates: start: 20080721, end: 20080919

REACTIONS (2)
  - DRUG INEFFECTIVE [None]
  - INTESTINAL RESECTION [None]
